FAERS Safety Report 7811529-8 (Version None)
Quarter: 2011Q4

REPORT INFORMATION
  Report Type: 
  Country: None (occurrence: None)
  Receive Date: 20111013
  Receipt Date: 20111013
  Transmission Date: 20120403
  Serious: Yes (Hospitalization)
  Sender: FDA-Public Use
  Company Number: None

PATIENT
  Age: 27 Year
  Sex: Female
  Weight: 90.264 kg

DRUGS (2)
  1. SEASONIQUE [Suspect]
     Indication: HYPOMENORRHOEA
     Dosage: 1 PILL
     Route: 048
  2. SEASONIQUE [Suspect]
     Indication: CONTRACEPTION
     Dosage: 1 PILL
     Route: 048

REACTIONS (7)
  - GALLBLADDER DISORDER [None]
  - CHOLELITHIASIS [None]
  - GASTROOESOPHAGEAL REFLUX DISEASE [None]
  - BILE DUCT OBSTRUCTION [None]
  - PULMONARY EMBOLISM [None]
  - PALPITATIONS [None]
  - DEEP VEIN THROMBOSIS [None]
